FAERS Safety Report 21585291 (Version 2)
Quarter: 2022Q4

REPORT INFORMATION
  Report Type: Report from Study
  Country: US (occurrence: US)
  Receive Date: 20221111
  Receipt Date: 20221222
  Transmission Date: 20230112
  Serious: No
  Sender: FDA-Public Use
  Company Number: US-ABBVIE-4196922

PATIENT
  Sex: Male

DRUGS (1)
  1. IMBRUVICA [Suspect]
     Active Substance: IBRUTINIB
     Indication: B-cell small lymphocytic lymphoma
     Route: 048
     Dates: start: 202208

REACTIONS (5)
  - Gastroenteritis viral [Unknown]
  - Stomatitis [Unknown]
  - Muscle spasms [Unknown]
  - Herpes zoster [Unknown]
  - Pain [Unknown]
